FAERS Safety Report 6087390-1 (Version None)
Quarter: 2009Q1

REPORT INFORMATION
  Report Type: 
  Country: None (occurrence: None)
  Receive Date: 20090223
  Receipt Date: 20090220
  Transmission Date: 20090719
  Serious: Yes (Hospitalization)
  Sender: FDA-Public Use
  Company Number: D0060595A

PATIENT
  Age: 52 Year
  Sex: Male

DRUGS (2)
  1. ABACAVIR SULFATE/LAMIVUDINE [Suspect]
     Route: 048
     Dates: start: 20050301
  2. TELZIR [Suspect]
     Route: 048
     Dates: start: 20050301

REACTIONS (1)
  - MYOCARDIAL INFARCTION [None]
